FAERS Safety Report 18054568 (Version 2)
Quarter: 2020Q3

REPORT INFORMATION
  Report Type: Spontaneous
  Country: DE (occurrence: DE)
  Receive Date: 20200722
  Receipt Date: 20200812
  Transmission Date: 20201103
  Serious: Yes (Other)
  Sender: FDA-Public Use
  Company Number: DE-PFIZER INC-2020276734

PATIENT
  Age: 32 Year
  Sex: Female
  Weight: 95 kg

DRUGS (1)
  1. CYTOTEC [Suspect]
     Active Substance: MISOPROSTOL
     Indication: LABOUR INDUCTION
     Dosage: 150 UG (3 TABLETS)
     Route: 048
     Dates: start: 20200420, end: 20200420

REACTIONS (6)
  - Off label use [Unknown]
  - Uterine tachysystole [Recovered/Resolved]
  - Vomiting [Recovered/Resolved]
  - Product use in unapproved indication [Unknown]
  - Procedural haemorrhage [Recovered/Resolved]
  - Uterine atony [Recovered/Resolved]

NARRATIVE: CASE EVENT DATE: 20200420
